FAERS Safety Report 5105182-4 (Version None)
Quarter: 2006Q3

REPORT INFORMATION
  Report Type: 
  Country: None (occurrence: None)
  Receive Date: 20060911
  Receipt Date: 20060823
  Transmission Date: 20061208
  Serious: Yes (Hospitalization, Other)
  Sender: FDA-Public Use
  Company Number: US200608005108

PATIENT
  Age: 69 Year
  Sex: Female

DRUGS (4)
  1. EVISTA [Suspect]
     Indication: OSTEOPOROSIS PROPHYLAXIS
     Dosage: 60 MG, ORAL
     Route: 048
     Dates: start: 20000101, end: 20060719
  2. ATENOLOL [Concomitant]
  3. DYAZIDE [Concomitant]
  4. LOPID [Concomitant]

REACTIONS (4)
  - DIZZINESS [None]
  - FEELING ABNORMAL [None]
  - LOSS OF CONSCIOUSNESS [None]
  - VISUAL DISTURBANCE [None]
